FAERS Safety Report 9169578 (Version 2)
Quarter: 2013Q4

REPORT INFORMATION
  Report Type: Report from Study
  Country: US (occurrence: US)
  Receive Date: 20130318
  Receipt Date: 20131210
  Transmission Date: 20140711
  Serious: No
  Sender: FDA-Public Use
  Company Number: US-VERTEX PHARMACEUTICALS INC.-2013-003680

PATIENT
  Age: 7 Year
  Sex: Male

DRUGS (1)
  1. VX-770 [Suspect]
     Indication: CYSTIC FIBROSIS
     Dosage: 150 MG, BID
     Dates: start: 20130219

REACTIONS (2)
  - Constipation [Unknown]
  - Abnormal dreams [Unknown]
